FAERS Safety Report 9307419 (Version 1)
Quarter: 2013Q2

REPORT INFORMATION
  Report Type: Spontaneous
  Country: CN (occurrence: CN)
  Receive Date: 20130524
  Receipt Date: 20130524
  Transmission Date: 20140414
  Serious: Yes (Other)
  Sender: FDA-Public Use
  Company Number: CN-JNJFOC-20130509635

PATIENT
  Age: 62 Year
  Sex: Female

DRUGS (1)
  1. FENTANYL TRANSDERMAL SYSTEM [Suspect]
     Indication: HEADACHE
     Dosage: (8.4 MG)
     Route: 062
     Dates: start: 20121105, end: 20121105

REACTIONS (3)
  - Coma [Recovered/Resolved]
  - Hypopnoea [Recovered/Resolved]
  - Loss of consciousness [Recovered/Resolved]
